FAERS Safety Report 5264046-6 (Version None)
Quarter: 2007Q1

REPORT INFORMATION
  Report Type: 
  Country: None (occurrence: None)
  Receive Date: 20070313
  Receipt Date: 20070301
  Transmission Date: 20070707
  Serious: Yes (Hospitalization)
  Sender: FDA-Public Use
  Company Number: US-PFIZER INC-2006003623

PATIENT
  Sex: Male
  Weight: 105.1 kg

DRUGS (13)
  1. SUTENT [Suspect]
     Indication: RENAL CELL CARCINOMA STAGE UNSPECIFIED
     Route: 048
     Dates: start: 20051123, end: 20051216
  2. FIBERCON [Concomitant]
     Route: 048
  3. COUMADIN [Concomitant]
     Route: 048
  4. DEXAMETHASONE [Concomitant]
     Route: 048
  5. LIDOCAINE [Concomitant]
     Dosage: TEXT:5%
     Route: 061
  6. TOPROL-XL [Concomitant]
     Route: 048
  7. OXYCONTIN [Concomitant]
     Route: 048
  8. PANTOPRAZOLE SODIUM [Concomitant]
     Route: 048
  9. SENNOSIDES [Concomitant]
     Route: 048
  10. PYRIDOXINE HCL [Concomitant]
     Route: 048
  11. THIAMINE [Concomitant]
     Route: 048
  12. ARANESP [Concomitant]
     Route: 058
  13. PRILOSEC [Concomitant]
     Route: 048

REACTIONS (2)
  - HYPERGLYCAEMIA [None]
  - INFECTION [None]
